FAERS Safety Report 13151111 (Version 2)
Quarter: 2017Q1

REPORT INFORMATION
  Report Type: Report from Study
  Country: ZW (occurrence: ZW)
  Receive Date: 20170125
  Receipt Date: 20170127
  Transmission Date: 20170428
  Serious: Yes (Death, Other)
  Sender: FDA-Public Use
  Company Number: ZW-GILEAD-2017-0254565

PATIENT
  Age: 53 Year
  Sex: Male

DRUGS (2)
  1. EFAVIRENZ/EMTRICITABINE/TENOFOVIR DISOPROXIL FUMARATE [Suspect]
     Active Substance: EFAVIRENZ\EMTRICITABINE\TENOFOVIR DISOPROXIL FUMARATE
     Indication: HIV INFECTION
     Dosage: 1 DF, UNK
     Route: 048
     Dates: start: 20151012, end: 20170112
  2. ETOPOSIDE. [Suspect]
     Active Substance: ETOPOSIDE
     Indication: HIV INFECTION
     Dosage: 100 MG, BID, X7 DAYS FOR 3 WEEKS (6 CYCLES)
     Route: 048
     Dates: start: 20151012, end: 20160211

REACTIONS (1)
  - Kaposi^s sarcoma [Fatal]

NARRATIVE: CASE EVENT DATE: 20170103
